FAERS Safety Report 9053916 (Version 1)
Quarter: 2013Q1

REPORT INFORMATION
  Report Type: Spontaneous
  Country: US (occurrence: None)
  Receive Date: 20130201
  Receipt Date: 20130201
  Transmission Date: 20140127
  Serious: No
  Sender: FDA-Public Use
  Company Number: None

PATIENT
  Age: 19 Year
  Sex: Female
  Weight: 97.52 kg

DRUGS (1)
  1. ONDANSETRON [Suspect]
     Dosage: ONE TABLET TWICE UNDER TONGUE
     Dates: start: 20130109

REACTIONS (4)
  - Rash [None]
  - Urticaria [None]
  - Pruritus generalised [None]
  - Economic problem [None]
